FAERS Safety Report 25597445 (Version 1)
Quarter: 2025Q3

REPORT INFORMATION
  Report Type: Spontaneous
  Country: JP (occurrence: JP)
  Receive Date: 20250723
  Receipt Date: 20250723
  Transmission Date: 20251021
  Serious: Yes (Other)
  Sender: PURDUE
  Company Number: JP-shionogiph-202500007373

PATIENT
  Age: 8 Decade
  Sex: Male

DRUGS (5)
  1. MS CONTIN [Interacting]
     Active Substance: MORPHINE SULFATE
     Indication: Dyspnoea
     Dosage: 20 MILLIGRAM, DAILY
     Route: 048
  2. MS CONTIN [Interacting]
     Active Substance: MORPHINE SULFATE
     Indication: Interstitial lung disease
  3. WARFARIN [Interacting]
     Active Substance: WARFARIN
     Indication: Product used for unknown indication
     Dosage: 2 MILLIGRAM, DAILY
     Route: 048
  4. MORPHINE HYDROCHLORIDE [Suspect]
     Active Substance: MORPHINE HYDROCHLORIDE
     Indication: Interstitial lung disease
     Route: 048
  5. MORPHINE HYDROCHLORIDE [Suspect]
     Active Substance: MORPHINE HYDROCHLORIDE
     Indication: Dyspnoea

REACTIONS (3)
  - International normalised ratio increased [Recovering/Resolving]
  - Drug interaction [Recovering/Resolving]
  - Off label use [Unknown]
